FAERS Safety Report 13423898 (Version 1)
Quarter: 2017Q2

REPORT INFORMATION
  Report Type: Spontaneous
  Country: US (occurrence: US)
  Receive Date: 20170410
  Receipt Date: 20170410
  Transmission Date: 20170830
  Serious: No
  Sender: FDA-Public Use
  Company Number: US-SHENZHEN TECHDOW PHARMACEUTICAL CO. LTD-US-2017TEC0000021

PATIENT
  Age: 53 Year
  Sex: Male

DRUGS (2)
  1. HEPARIN SODIUM INJECTION USP, CONTAINING PARABENS, WITH NACL [Suspect]
     Active Substance: HEPARIN SODIUM
     Indication: CORONARY ARTERY BYPASS
     Dosage: 50 ML, UNK (10000 UNITS/10 ML, 1000 UNITS/ML)
     Dates: start: 201611
  2. PAPAVERINE [Suspect]
     Active Substance: PAPAVERINE
     Indication: CORONARY ARTERY BYPASS
     Dosage: 50 ML, UNK
     Dates: start: 201611

REACTIONS (2)
  - Drug effect decreased [Unknown]
  - Product measured potency issue [Unknown]

NARRATIVE: CASE EVENT DATE: 201611
